FAERS Safety Report 17420924 (Version 2)
Quarter: 2020Q1

REPORT INFORMATION
  Report Type: Spontaneous
  Country: US (occurrence: US)
  Receive Date: 20200214
  Receipt Date: 20200311
  Transmission Date: 20200409
  Serious: Yes (Hospitalization, Other)
  Sender: FDA-Public Use
  Company Number: US-GILEAD-2020-0450992

PATIENT
  Age: 28 Year
  Sex: Male
  Weight: 71 kg

DRUGS (5)
  1. BIKTARVY [Suspect]
     Active Substance: BICTEGRAVIR SODIUM\EMTRICITABINE\TENOFOVIR ALAFENAMIDE FUMARATE
     Indication: HIV INFECTION
     Dosage: 1 DOSAGE FORM (50-200-25)
     Route: 048
     Dates: start: 20190416, end: 20200122
  2. TERBINAFINE. [Concomitant]
     Active Substance: TERBINAFINE
  3. ZOFRAN [Concomitant]
     Active Substance: ONDANSETRON HYDROCHLORIDE
     Dosage: UNK, PRN
  4. VITAMIN D [VITAMIN D NOS] [Concomitant]
     Active Substance: VITAMIN D NOS
     Indication: SUPPLEMENTATION THERAPY
     Dosage: 50000 IU, Q1WK
     Route: 048
     Dates: start: 20180306
  5. ALDARA [Concomitant]
     Active Substance: IMIQUIMOD

REACTIONS (1)
  - Pancreatitis [Unknown]

NARRATIVE: CASE EVENT DATE: 20200121
